FAERS Safety Report 5704874-3 (Version None)
Quarter: 2008Q2

REPORT INFORMATION
  Report Type: 
  Country: None (occurrence: None)
  Receive Date: 20080414
  Receipt Date: 20080403
  Transmission Date: 20081010
  Serious: Yes (Hospitalization)
  Sender: FDA-Public Use
  Company Number: US-AMGEN-QUU242526

PATIENT
  Sex: Female
  Weight: 41.8 kg

DRUGS (4)
  1. ENBREL [Suspect]
     Indication: RHEUMATOID ARTHRITIS
     Dates: start: 20000101
  2. CELEBREX [Concomitant]
  3. INSULIN [Concomitant]
  4. LANTUS [Concomitant]

REACTIONS (23)
  - CENTRAL LINE INFECTION [None]
  - CEREBROVASCULAR SPASM [None]
  - COGNITIVE DISORDER [None]
  - DECUBITUS ULCER [None]
  - DYSPHAGIA [None]
  - ENTEROCOCCAL INFECTION [None]
  - FAECAL INCONTINENCE [None]
  - FLUID OVERLOAD [None]
  - GRAND MAL CONVULSION [None]
  - HYDROCEPHALUS [None]
  - HYPERGLYCAEMIA [None]
  - INJECTION SITE IRRITATION [None]
  - JOINT RANGE OF MOTION DECREASED [None]
  - OPEN WOUND [None]
  - PAIN IN EXTREMITY [None]
  - PLEURAL EFFUSION [None]
  - PNEUMONIA STAPHYLOCOCCAL [None]
  - PULMONARY OEDEMA [None]
  - RESPIRATORY FAILURE [None]
  - SEPSIS [None]
  - SUBARACHNOID HAEMORRHAGE [None]
  - TACHYCARDIA [None]
  - URINARY TRACT INFECTION [None]
